FAERS Safety Report 5030800-9 (Version None)
Quarter: 2006Q2

REPORT INFORMATION
  Report Type: 
  Country: None (occurrence: None)
  Receive Date: 20060614
  Receipt Date: 20060608
  Transmission Date: 20061013
  Serious: Yes (Hospitalization)
  Sender: FDA-Public Use
  Company Number: FRWYE122107MAY03

PATIENT
  Age: 49 Year
  Sex: Male

DRUGS (7)
  1. RAPAMUNE [Suspect]
     Indication: PROPHYLAXIS AGAINST TRANSPLANT REJECTION
     Dosage: SEE IMAGE
     Route: 048
     Dates: start: 20030212, end: 20030213
  2. RAPAMUNE [Suspect]
     Indication: PROPHYLAXIS AGAINST TRANSPLANT REJECTION
     Dosage: SEE IMAGE
     Route: 048
     Dates: start: 20030214, end: 20030320
  3. RAPAMUNE [Suspect]
     Indication: PROPHYLAXIS AGAINST TRANSPLANT REJECTION
     Dosage: SEE IMAGE
     Route: 048
     Dates: start: 20030321, end: 20030404
  4. RAPAMUNE [Suspect]
     Indication: PROPHYLAXIS AGAINST TRANSPLANT REJECTION
     Dosage: SEE IMAGE
     Route: 048
     Dates: start: 20030405
  5. CELLCEPT [Suspect]
     Indication: PROPHYLAXIS AGAINST TRANSPLANT REJECTION
     Dosage: 2 G 1X PER 1 DAY
     Route: 048
     Dates: start: 20030211, end: 20030403
  6. CORTANCYL (PREDNISONE, , 0) [Suspect]
     Indication: PROPHYLAXIS AGAINST TRANSPLANT REJECTION
     Dosage: 30 MG 1X PER 1 DAY
     Route: 048
     Dates: start: 20030325, end: 20030328
  7. MAXEPA (CITRIC ACID/FATTY ACIDS NOS/GLUCOSE/INSULIN/INSULIN HUMAN INJE [Concomitant]

REACTIONS (4)
  - ANAEMIA [None]
  - CAMPYLOBACTER INTESTINAL INFECTION [None]
  - HYPERTRIGLYCERIDAEMIA [None]
  - INSULIN RESISTANT DIABETES [None]
